FAERS Safety Report 10057600 (Version 1)
Quarter: 2014Q2

REPORT INFORMATION
  Report Type: Spontaneous
  Country: FR (occurrence: FR)
  Receive Date: 20140404
  Receipt Date: 20140404
  Transmission Date: 20141212
  Serious: Yes (Hospitalization, Other)
  Sender: FDA-Public Use
  Company Number: FR-PFIZER INC-2014089511

PATIENT
  Age: 55 Year
  Sex: Male

DRUGS (12)
  1. ALDACTONE [Suspect]
     Indication: ASCITES
     Dosage: 25 MG, DAILY
     Route: 048
     Dates: start: 2012, end: 201312
  2. ALDACTONE [Suspect]
     Dosage: 100 MG, DAILY
     Dates: start: 201312, end: 20140113
  3. ALDACTONE [Suspect]
     Dosage: UNK
     Dates: start: 20140117
  4. AVLOCARDYL [Concomitant]
     Dosage: 40 MG, 2X/DAY
     Route: 048
     Dates: start: 201312
  5. KARDEGIC [Concomitant]
     Dosage: 75 MG, 1X/DAY
     Route: 048
     Dates: start: 201312
  6. PLAVIX [Concomitant]
     Dosage: 75 MG, 1X/DAY
     Route: 048
     Dates: start: 201312, end: 20140221
  7. EUPANTOL [Concomitant]
     Dosage: 40 MG, 1X/DAY
     Route: 048
     Dates: start: 201312
  8. LASILIX RETARD [Concomitant]
     Dosage: 60 MG, 1X/DAY
     Route: 048
     Dates: start: 201312
  9. FORLAX [Concomitant]
     Dosage: 1 DF, 2X/DAY
     Route: 048
     Dates: start: 201401
  10. VIREAD [Concomitant]
     Dosage: 245 MG, 1X/DAY
     Route: 048
     Dates: start: 20140103, end: 20140111
  11. ROCEPHINE [Concomitant]
     Dosage: UNK
     Route: 042
     Dates: start: 20140103, end: 20140105
  12. VITAMINE C [Concomitant]
     Dosage: 500 MG, 3X/DAY
     Route: 048
     Dates: start: 201312

REACTIONS (2)
  - Pancreatitis acute [Not Recovered/Not Resolved]
  - Acute coronary syndrome [Unknown]
